FAERS Safety Report 5445926-5 (Version None)
Quarter: 2007Q3

REPORT INFORMATION
  Report Type: 
  Country: None (occurrence: None)
  Receive Date: 20070731
  Receipt Date: 20060619
  Transmission Date: 20080115
  Serious: Yes (Other)
  Sender: FDA-Public Use
  Company Number: US-2006-016033

PATIENT
  Age: 45 Year
  Sex: Male
  Weight: 72 kg

DRUGS (1)
  1. MAGNEVIST [Suspect]
     Indication: NUCLEAR MAGNETIC RESONANCE IMAGING BRAIN
     Dosage: 15  ML, 1 DOSE, INTRAVENOUS
     Route: 042
     Dates: start: 20060619, end: 20060619

REACTIONS (6)
  - CONVULSION [None]
  - DIZZINESS [None]
  - HYPERHIDROSIS [None]
  - MYDRIASIS [None]
  - NAUSEA [None]
  - VOMITING [None]
